FAERS Safety Report 13569046 (Version 1)
Quarter: 2017Q2

REPORT INFORMATION
  Report Type: Spontaneous
  Country: CH (occurrence: CH)
  Receive Date: 20170522
  Receipt Date: 20170522
  Transmission Date: 20170830
  Serious: Yes (Death, Other)
  Sender: FDA-Public Use
  Company Number: CH-ASTRAZENECA-2017SE52847

PATIENT
  Sex: Female

DRUGS (3)
  1. LYNPARZA [Suspect]
     Active Substance: OLAPARIB
     Route: 048
     Dates: start: 20160929
  2. LYNPARZA [Suspect]
     Active Substance: OLAPARIB
     Route: 048
  3. CAELYX [Concomitant]
     Active Substance: DOXORUBICIN HYDROCHLORIDE

REACTIONS (3)
  - Ascites [Fatal]
  - Neutropenia [Recovered/Resolved]
  - Neoplasm progression [Fatal]
